FAERS Safety Report 5701074-8 (Version None)
Quarter: 2008Q2

REPORT INFORMATION
  Report Type: 
  Country: None (occurrence: None)
  Receive Date: 20080410
  Receipt Date: 20080327
  Transmission Date: 20081010
  Serious: Yes (Hospitalization)
  Sender: FDA-Public Use
  Company Number: GB-AMGEN-US271979

PATIENT

DRUGS (3)
  1. ENBREL [Suspect]
     Indication: DRUG USE FOR UNKNOWN INDICATION
     Dosage: 1 DOSE OF 50MG
     Route: 058
  2. NSAID'S [Concomitant]
     Dosage: UNKNOWN
     Route: 065
  3. OMEPRAZOLE [Concomitant]
     Dosage: UNKNOWN
     Route: 065

REACTIONS (1)
  - CONFUSIONAL STATE [None]
